FAERS Safety Report 23688351 (Version 1)
Quarter: 2024Q1

REPORT INFORMATION
  Report Type: Report from Study
  Country: TW (occurrence: None)
  Receive Date: 20240329
  Receipt Date: 20240329
  Transmission Date: 20240410
  Serious: Yes (Hospitalization)
  Sender: FDA-Public Use
  Company Number: 2024A072806

PATIENT
  Sex: Male

DRUGS (4)
  1. IMFINZI [Suspect]
     Active Substance: DURVALUMAB
     Dosage: 840.0MG UNKNOWN
     Route: 041
     Dates: start: 20230706, end: 20231127
  2. IMFINZI [Suspect]
     Active Substance: DURVALUMAB
     Dosage: 480.0MG UNKNOWN
     Route: 041
     Dates: start: 20230729, end: 20230821
  3. IMFINZI [Suspect]
     Active Substance: DURVALUMAB
     Dosage: 360.0MG UNKNOWN
     Route: 041
     Dates: start: 20231205, end: 20231218
  4. IMFINZI [Suspect]
     Active Substance: DURVALUMAB
     Dosage: 240.0MG UNKNOWN
     Route: 041
     Dates: start: 20230819

REACTIONS (4)
  - Wheezing [Unknown]
  - Dry mouth [Unknown]
  - Stomatitis [Unknown]
  - Pneumonia [Unknown]
